FAERS Safety Report 9602771 (Version 4)
Quarter: 2015Q4

REPORT INFORMATION
  Report Type: Spontaneous
  Country: US (occurrence: US)
  Receive Date: 20131007
  Receipt Date: 20151202
  Transmission Date: 20160305
  Serious: Yes (Hospitalization, Disabling)
  Sender: FDA-Public Use
  Company Number: US-BAYER-2013-119950

PATIENT
  Age: 37 Year
  Sex: Female

DRUGS (5)
  1. YASMIN [Suspect]
     Active Substance: DROSPIRENONE\ETHINYL ESTRADIOL
     Dosage: UNK
     Route: 048
     Dates: start: 20071129, end: 20080201
  2. VICODIN [Concomitant]
     Active Substance: ACETAMINOPHEN\HYDROCODONE BITARTRATE
  3. YAZ [Suspect]
     Active Substance: DROSPIRENONE\ETHINYL ESTRADIOL
     Route: 048
  4. NEXIUM [Concomitant]
     Active Substance: ESOMEPRAZOLE MAGNESIUM
  5. DILANTIN [Concomitant]
     Active Substance: PHENYTOIN
     Indication: SEIZURE
     Dosage: 500 MG, PER DAY

REACTIONS (9)
  - Cerebral infarction [None]
  - Fear of disease [None]
  - Intracardiac thrombus [None]
  - Pain [None]
  - Emotional distress [None]
  - Haemorrhagic stroke [None]
  - Visual field defect [None]
  - Injury [None]
  - Anxiety [None]

NARRATIVE: CASE EVENT DATE: 20080215
